FAERS Safety Report 5595048-8 (Version None)
Quarter: 2008Q1

REPORT INFORMATION
  Report Type: 
  Country: None (occurrence: None)
  Receive Date: 20080117
  Receipt Date: 20080109
  Transmission Date: 20080703
  Serious: Yes (Other)
  Sender: FDA-Public Use
  Company Number: JP-ROCHE-537691

PATIENT
  Age: 5 Year
  Sex: Male

DRUGS (5)
  1. TAMIFLU [Suspect]
     Dosage: DRUG: TAMIFLU DRY SYRUP 3%
     Route: 048
     Dates: start: 20071214, end: 20071214
  2. PERIACTIN [Concomitant]
     Route: 048
     Dates: start: 20071214, end: 20071219
  3. ASVERIN [Concomitant]
     Route: 048
     Dates: start: 20071214, end: 20071219
  4. MUCODYNE [Concomitant]
     Route: 048
     Dates: start: 20071214, end: 20071219
  5. ANHIBA [Concomitant]
     Route: 054
     Dates: start: 20071214

REACTIONS (1)
  - CONVULSION [None]
